FAERS Safety Report 7249540-0 (Version None)
Quarter: 2011Q1

REPORT INFORMATION
  Report Type: 
  Country: None (occurrence: None)
  Receive Date: 20110128
  Receipt Date: 20101209
  Transmission Date: 20110831
  Serious: Yes (Death, Hospitalization)
  Sender: FDA-Public Use
  Company Number: JP-BAYER-200912595BYL

PATIENT
  Sex: Male
  Weight: 42 kg

DRUGS (8)
  1. NEXAVAR [Suspect]
     Indication: RENAL CELL CARCINOMA
     Route: 048
     Dates: start: 20090618, end: 20090630
  2. NEXAVAR [Suspect]
     Dosage: 200 MG, QD
     Route: 048
     Dates: start: 20100709, end: 20100831
  3. NEXAVAR [Suspect]
  4. NEXAVAR [Suspect]
     Dosage: 400 MG, QD
     Route: 048
     Dates: start: 20090803, end: 20090828
  5. NEXAVAR [Suspect]
     Dosage: 400 MG, QOD
     Route: 048
     Dates: end: 20091023
  6. NEXAVAR [Suspect]
     Dosage: 400 MG, QD
     Route: 048
     Dates: start: 20090907, end: 20090915
  7. NEXAVAR [Suspect]
     Dosage: 400 MG, QD
     Route: 048
     Dates: start: 20090918, end: 20090920
  8. NEXAVAR [Suspect]
     Dosage: 400 MG, QD
     Route: 048
     Dates: start: 20100624, end: 20100708

REACTIONS (6)
  - PLATELET COUNT DECREASED [None]
  - ABDOMINAL PAIN [None]
  - DECREASED APPETITE [None]
  - RENAL CELL CARCINOMA [None]
  - HEPATIC FUNCTION ABNORMAL [None]
  - DIARRHOEA [None]
